FAERS Safety Report 23947399 (Version 1)
Quarter: 2024Q2

REPORT INFORMATION
  Report Type: Spontaneous
  Country: FR (occurrence: FR)
  Receive Date: 20240606
  Receipt Date: 20240606
  Transmission Date: 20240715
  Serious: Yes (Hospitalization)
  Sender: FDA-Public Use
  Company Number: None

PATIENT
  Age: 61 Year
  Sex: Female

DRUGS (4)
  1. ERIBULIN [Suspect]
     Active Substance: ERIBULIN
     Indication: Hormone receptor positive HER2 negative breast cancer
     Dosage: CURE ON 01/29/2024, 1 DOSE
     Route: 042
     Dates: start: 20240129, end: 20240129
  2. CLINDAMYCIN [Suspect]
     Active Substance: CLINDAMYCIN
     Indication: Febrile bone marrow aplasia
     Dosage: 2 CAPSULES 300MG 3 TIMES A DAY
     Route: 048
     Dates: start: 20240205, end: 20240212
  3. CIPROFLOXACIN [Suspect]
     Active Substance: CIPROFLOXACIN
     Indication: Febrile bone marrow aplasia
     Dosage: 750MG 2/DAY
     Route: 048
     Dates: start: 20240205, end: 20240212
  4. TARKA [Concomitant]
     Active Substance: TRANDOLAPRIL\VERAPAMIL HYDROCHLORIDE
     Indication: Product used for unknown indication

REACTIONS (3)
  - Febrile bone marrow aplasia [Recovered/Resolved]
  - Renal tubular necrosis [Recovering/Resolving]
  - Acute kidney injury [Recovering/Resolving]

NARRATIVE: CASE EVENT DATE: 20240202
